FAERS Safety Report 6963034-9 (Version None)
Quarter: 2010Q3

REPORT INFORMATION
  Report Type: 
  Country: None (occurrence: None)
  Receive Date: 20100823
  Receipt Date: 20100512
  Transmission Date: 20110219
  Serious: No
  Sender: FDA-Public Use
  Company Number: 012237

PATIENT

DRUGS (1)
  1. CIMZIA [Suspect]
     Dosage: SUBCUTANEOUS
     Route: 058
     Dates: start: 20100201

REACTIONS (4)
  - ARTHRALGIA [None]
  - MYALGIA [None]
  - RASH [None]
  - TINEA PEDIS [None]
